FAERS Safety Report 5721446-5 (Version None)
Quarter: 2008Q2

REPORT INFORMATION
  Report Type: 
  Country: None (occurrence: None)
  Receive Date: 20080429
  Receipt Date: 20080422
  Transmission Date: 20081010
  Serious: Yes (Disabling)
  Sender: FDA-Public Use
  Company Number: FR-ASTRAZENECA-2008CG00261

PATIENT
  Age: 583 Month
  Sex: Female
  Weight: 47 kg

DRUGS (13)
  1. NEXIUM [Suspect]
     Indication: HIATUS HERNIA
     Route: 048
     Dates: start: 20040101, end: 20071119
  2. NEXIUM [Suspect]
     Indication: ABDOMINAL PAIN UPPER
     Route: 048
     Dates: start: 20040101, end: 20071119
  3. NEXIUM [Suspect]
     Indication: OESOPHAGITIS
     Route: 048
     Dates: start: 20040101, end: 20071119
  4. NEXIUM [Suspect]
     Route: 048
     Dates: start: 20071119, end: 20080201
  5. NEXIUM [Suspect]
     Route: 048
     Dates: start: 20071119, end: 20080201
  6. NEXIUM [Suspect]
     Route: 048
     Dates: start: 20071119, end: 20080201
  7. NEXIUM [Suspect]
     Route: 048
     Dates: start: 20080201
  8. NEXIUM [Suspect]
     Route: 048
     Dates: start: 20080201
  9. NEXIUM [Suspect]
     Route: 048
     Dates: start: 20080201
  10. HYTACAND [Concomitant]
     Indication: HYPERTENSION
     Route: 048
     Dates: end: 20071201
  11. DETENSIEL [Concomitant]
     Indication: HYPERTENSION
     Route: 065
     Dates: start: 20071201
  12. ANTIBIOTICS [Concomitant]
     Route: 048
     Dates: start: 20071201
  13. CORTISONE [Concomitant]
     Route: 055
     Dates: start: 20071201

REACTIONS (3)
  - APHONIA [None]
  - PNEUMONIA [None]
  - VISION BLURRED [None]
